FAERS Safety Report 25872201 (Version 1)
Quarter: 2025Q4

REPORT INFORMATION
  Report Type: Report from Study
  Country: EU (occurrence: EU)
  Receive Date: 20251002
  Receipt Date: 20251002
  Transmission Date: 20260117
  Serious: Yes (Hospitalization)
  Sender: ABBVIE
  Company Number: EU-ABBVIE-6482652

PATIENT
  Age: 65 Year
  Sex: Male

DRUGS (2)
  1. CARBIDOPA\LEVODOPA [Suspect]
     Active Substance: CARBIDOPA\LEVODOPA
     Indication: Product used for unknown indication
     Route: 050
     Dates: start: 20150507
  2. CARBIDOPA\LEVODOPA [Suspect]
     Active Substance: CARBIDOPA\LEVODOPA

REACTIONS (7)
  - Discomfort [Not Recovered/Not Resolved]
  - Cognitive disorder [Not Recovered/Not Resolved]
  - Pyrexia [Not Recovered/Not Resolved]
  - Ear discomfort [Not Recovered/Not Resolved]
  - Oropharyngeal discomfort [Not Recovered/Not Resolved]
  - Nasal discomfort [Not Recovered/Not Resolved]
  - Malaise [Unknown]

NARRATIVE: CASE EVENT DATE: 20250919
